FAERS Safety Report 7505669-0 (Version None)
Quarter: 2011Q2

REPORT INFORMATION
  Report Type: 
  Country: None (occurrence: None)
  Receive Date: 20110526
  Receipt Date: 20110522
  Transmission Date: 20111010
  Serious: No
  Sender: FDA-Public Use
  Company Number: US-TEVA-283318USA

PATIENT
  Sex: Female
  Weight: 61.29 kg

DRUGS (3)
  1. PLAN B ONE-STEP [Suspect]
     Indication: POST COITAL CONTRACEPTION
     Dosage: 1.5 MILLIGRAM;
     Route: 048
     Dates: start: 20110522, end: 20110522
  2. ESTROL BLEND [Concomitant]
     Indication: PROPHYLAXIS
     Dates: start: 20100101
  3. IMPLANON [Concomitant]
     Indication: CONTRACEPTION
     Dates: start: 20100101

REACTIONS (1)
  - PELVIC PAIN [None]
